FAERS Safety Report 11966327 (Version 1)
Quarter: 2016Q1

REPORT INFORMATION
  Report Type: Spontaneous
  Country: US (occurrence: US)
  Receive Date: 20160127
  Receipt Date: 20160127
  Transmission Date: 20160526
  Serious: No
  Sender: FDA-Public Use
  Company Number: US-ALLERGAN-1506598US

PATIENT
  Sex: Female

DRUGS (2)
  1. BLEPHAMIDE [Suspect]
     Active Substance: PREDNISOLONE ACETATE\SULFACETAMIDE SODIUM
     Indication: EYE PRURITUS
  2. BLEPHAMIDE [Suspect]
     Active Substance: PREDNISOLONE ACETATE\SULFACETAMIDE SODIUM
     Indication: EYE IRRITATION
     Dosage: UNK, BID
     Route: 061
     Dates: start: 201504

REACTIONS (6)
  - Incorrect route of drug administration [Unknown]
  - Vision blurred [Recovered/Resolved]
  - Incorrect product formulation administered [Recovered/Resolved]
  - Off label use [Unknown]
  - Incorrect dose administered [Not Recovered/Not Resolved]
  - Wrong technique in product usage process [Not Recovered/Not Resolved]
